FAERS Safety Report 6356352-9 (Version None)
Quarter: 2009Q3

REPORT INFORMATION
  Report Type: 
  Country: None (occurrence: None)
  Receive Date: 20090911
  Receipt Date: 20090911
  Transmission Date: 20100115
  Serious: Yes (Hospitalization, Other)
  Sender: FDA-Public Use
  Company Number: None

PATIENT
  Age: 50 Year
  Sex: Female
  Weight: 56.6996 kg

DRUGS (1)
  1. REMICADE [Suspect]
     Indication: COLITIS ULCERATIVE
     Dosage: I WAS GIVEN 600 MG IN NM BI MONTHLY IV DRIP 500 MG IN BOSTON
     Route: 041
     Dates: start: 20050101, end: 20090720

REACTIONS (9)
  - ABASIA [None]
  - CHEST PAIN [None]
  - DRUG ADMINISTRATION ERROR [None]
  - DYSPNOEA [None]
  - INFUSION RELATED REACTION [None]
  - MALAISE [None]
  - MUSCLE DISORDER [None]
  - PARALYSIS [None]
  - PYREXIA [None]
